FAERS Safety Report 11989433 (Version 1)
Quarter: 2016Q1

REPORT INFORMATION
  Report Type: Report from Study
  Country: US (occurrence: US)
  Receive Date: 20160202
  Receipt Date: 20160202
  Transmission Date: 20160526
  Serious: Yes (Hospitalization)
  Sender: FDA-Public Use
  Company Number: US-JNJFOC-20160115485

PATIENT
  Age: 30 Year
  Sex: Female
  Weight: 52.2 kg

DRUGS (6)
  1. ACETAMINOPHEN. [Suspect]
     Active Substance: ACETAMINOPHEN
     Indication: FACIAL PAIN
     Dosage: HANDFUL
     Route: 048
  2. ACETAMINOPHEN. [Suspect]
     Active Substance: ACETAMINOPHEN
     Indication: FACIAL PAIN
     Dosage: (12 TABS OF 325 MG) DAILY FOR MANY YEARS.??-HANDFUL OF APAP ABOUT 48 HR PRIOR AND AGAIN
     Route: 048
  3. ACETAMINOPHEN. [Suspect]
     Active Substance: ACETAMINOPHEN
     Indication: FIBROMYALGIA
     Dosage: (12 TABS OF 325 MG) DAILY FOR MANY YEARS.??-HANDFUL OF APAP ABOUT 48 HR PRIOR AND AGAIN
     Route: 048
  4. APAP/DIPHENHYDRAMINE [Suspect]
     Active Substance: ACETAMINOPHEN\DIPHENHYDRAMINE
     Indication: PRODUCT USED FOR UNKNOWN INDICATION
     Route: 048
  5. VICKS NYQUIL [Suspect]
     Active Substance: ACETAMINOPHEN\DEXTROMETHORPHAN HYDROBROMIDE\DOXYLAMINE SUCCINATE
     Indication: PRODUCT USED FOR UNKNOWN INDICATION
     Dosage: A COUPLE DAYS PRIOR
     Route: 048
  6. ACETAMINOPHEN. [Suspect]
     Active Substance: ACETAMINOPHEN
     Indication: FIBROMYALGIA
     Dosage: HANDFUL
     Route: 048

REACTIONS (5)
  - Toxicity to various agents [Unknown]
  - Abdominal pain [Unknown]
  - Transaminases increased [Unknown]
  - Vomiting [Unknown]
  - Prothrombin time prolonged [Unknown]

NARRATIVE: CASE EVENT DATE: 20150604
